FAERS Safety Report 4698730-X (Version None)
Quarter: 2005Q2

REPORT INFORMATION
  Report Type: 
  Country: None (occurrence: None)
  Receive Date: 20050621
  Receipt Date: 20050310
  Transmission Date: 20051028
  Serious: Yes (Other)
  Sender: FDA-Public Use
  Company Number: 2005037841

PATIENT
  Sex: Female

DRUGS (4)
  1. VFEND [Suspect]
     Indication: FUNGAL INFECTION
     Dosage: 600 MG, INTRAVENOUS
     Route: 042
  2. VFEND [Suspect]
     Indication: PULMONARY MYCOSIS
     Dosage: 600 MG, INTRAVENOUS
     Route: 042
  3. VFEND [Suspect]
     Indication: FUNGAL INFECTION
     Dosage: 400 MG, INTRAVENOUS
     Route: 042
  4. VFEND [Suspect]
     Indication: PULMONARY MYCOSIS
     Dosage: 400 MG, INTRAVENOUS
     Route: 042

REACTIONS (4)
  - EYE DISORDER [None]
  - FACE INJURY [None]
  - NERVOUS SYSTEM DISORDER [None]
  - VITREOUS FLOATERS [None]
